FAERS Safety Report 13062557 (Version 1)
Quarter: 2016Q4

REPORT INFORMATION
  Report Type: Spontaneous
  Country: US (occurrence: US)
  Receive Date: 20161226
  Receipt Date: 20161226
  Transmission Date: 20170207
  Serious: Yes (Other)
  Sender: FDA-Public Use
  Company Number: US-JAZZ-2014-US-013553

PATIENT
  Age: 51 Year
  Sex: Male
  Weight: 81.18 kg

DRUGS (4)
  1. ALL OTHER THERAPEUTIC PRODUCTS [Concomitant]
     Active Substance: UNSPECIFIED INGREDIENT
     Indication: INFLAMMATION
     Dosage: UNK
     Route: 045
  2. CHOLESTYRAMINE. [Concomitant]
     Active Substance: CHOLESTYRAMINE
     Indication: DETOXIFICATION
     Dosage: UNK
     Route: 048
  3. XYREM [Suspect]
     Active Substance: SODIUM OXYBATE
     Indication: FIBROMYALGIA
     Dosage: 4 G, BID
     Route: 048
     Dates: start: 20141014
  4. ADVIL [Concomitant]
     Active Substance: IBUPROFEN
     Indication: PAIN
     Dosage: UNK
     Route: 048

REACTIONS (5)
  - Throat irritation [Not Recovered/Not Resolved]
  - Product use issue [Unknown]
  - Rhinorrhoea [Not Recovered/Not Resolved]
  - Multiple sclerosis [Recovering/Resolving]
  - Respiratory tract congestion [Not Recovered/Not Resolved]

NARRATIVE: CASE EVENT DATE: 2014
